FAERS Safety Report 5385158-2 (Version None)
Quarter: 2007Q3

REPORT INFORMATION
  Report Type: 
  Country: None (occurrence: None)
  Receive Date: 20070709
  Receipt Date: 20070702
  Transmission Date: 20080115
  Serious: Yes (Life-Threatening, Hospitalization)
  Sender: FDA-Public Use
  Company Number: 2007SP003477

PATIENT
  Age: 79 Year
  Sex: Female

DRUGS (5)
  1. DESLORATADINE [Suspect]
     Dosage: 5 MG; QD; PO
     Route: 048
     Dates: start: 20060615, end: 20060619
  2. ARCALION               (NO PREF. NAME) [Suspect]
     Dosage: PO
     Route: 048
     Dates: start: 20060601, end: 20060619
  3. ESIDRIX [Suspect]
     Dates: end: 20060619
  4. PRIMPERAN TAB [Suspect]
     Dates: end: 20060619
  5. FLUCONAZOLE [Suspect]
     Dates: end: 20060619

REACTIONS (22)
  - ANTI-SS-A ANTIBODY POSITIVE [None]
  - ANTINUCLEAR ANTIBODY POSITIVE [None]
  - ASTHENIA [None]
  - BIOPSY SALIVARY GLAND ABNORMAL [None]
  - CONJUNCTIVITIS INFECTIVE [None]
  - DEHYDRATION [None]
  - DEPRESSION [None]
  - FACE INJURY [None]
  - FALL [None]
  - GENERAL PHYSICAL CONDITION ABNORMAL [None]
  - HYPONATRAEMIA [None]
  - LOSS OF CONSCIOUSNESS [None]
  - LUPUS-LIKE SYNDROME [None]
  - PERIORBITAL HAEMATOMA [None]
  - PROTEINURIA [None]
  - PRURIGO [None]
  - RASH ERYTHEMATOUS [None]
  - RENAL FAILURE ACUTE [None]
  - SJOGREN'S SYNDROME [None]
  - STAPHYLOCOCCAL SEPSIS [None]
  - STEVENS-JOHNSON SYNDROME [None]
  - WHITE BLOOD CELL COUNT DECREASED [None]
